FAERS Safety Report 7424157-3 (Version None)
Quarter: 2011Q2

REPORT INFORMATION
  Report Type: 
  Country: None (occurrence: None)
  Receive Date: 20110419
  Receipt Date: 20110411
  Transmission Date: 20111010
  Serious: Yes (Other)
  Sender: FDA-Public Use
  Company Number: DE-TEVA-276945GER

PATIENT
  Age: 32 Year
  Sex: Female

DRUGS (1)
  1. LEFLUNOMIDE [Suspect]
     Indication: RHEUMATOID ARTHRITIS
     Dosage: 20 MILLIGRAM;

REACTIONS (1)
  - APLASTIC ANAEMIA [None]
